FAERS Safety Report 9198055 (Version 1)
Quarter: 2013Q1

REPORT INFORMATION
  Report Type: Spontaneous
  Country: US (occurrence: US)
  Receive Date: 20130328
  Receipt Date: 20130328
  Transmission Date: 20140127
  Serious: Yes (Other)
  Sender: FDA-Public Use
  Company Number: US-B.I. PHARMACEUTICALS,INC./RIDGEFIELD-2013-BI-08096BP

PATIENT
  Age: 69 None
  Sex: Female
  Weight: 57 kg

DRUGS (15)
  1. SPIRIVA [Suspect]
     Indication: CHRONIC OBSTRUCTIVE PULMONARY DISEASE
     Dosage: 18 MCG
     Route: 055
     Dates: start: 2010
  2. SPIRIVA [Suspect]
     Route: 048
     Dates: start: 20130322, end: 20130322
  3. HYDRALAZINE [Concomitant]
     Indication: HYPERTENSION
     Dosage: 75 MG
     Route: 048
  4. LOSARTAN [Concomitant]
     Indication: CARDIAC DISORDER
     Dosage: 100 MG
     Route: 048
  5. PLAVIX [Concomitant]
     Indication: THROMBOSIS
     Dosage: 75 MG
     Route: 048
  6. OXYBUTYININ [Concomitant]
     Indication: INCONTINENCE
     Dosage: 10 MG
     Route: 048
  7. ASPIRIN [Concomitant]
     Indication: CARDIAC DISORDER
     Route: 048
  8. NITRO-BID [Concomitant]
     Indication: CARDIAC DISORDER
     Dosage: 0.8 MG
     Route: 061
  9. SYMBICORT [Concomitant]
     Indication: CHRONIC OBSTRUCTIVE PULMONARY DISEASE
     Route: 055
  10. PROAIR [Concomitant]
     Indication: CHRONIC OBSTRUCTIVE PULMONARY DISEASE
     Route: 055
  11. ALBUTEROL NEBULIZER [Concomitant]
     Indication: CHRONIC OBSTRUCTIVE PULMONARY DISEASE
  12. MAGNESIUM [Concomitant]
     Dosage: 400 MG
     Route: 042
  13. LASIX [Concomitant]
     Indication: OEDEMA PERIPHERAL
     Dosage: 80 MG
     Route: 048
  14. POTASSIUM CHLORIDE [Concomitant]
     Dosage: 20 MEQ
     Route: 048
  15. PREVACID [Concomitant]
     Indication: GASTRIC DISORDER
     Dosage: 60 MG
     Route: 048

REACTIONS (2)
  - Cardiac failure congestive [Not Recovered/Not Resolved]
  - Incorrect route of drug administration [Recovered/Resolved]
